FAERS Safety Report 9261384 (Version 1)
Quarter: 2013Q2

REPORT INFORMATION
  Report Type: Report from Study
  Country: BR (occurrence: BR)
  Receive Date: 20130429
  Receipt Date: 20130429
  Transmission Date: 20140414
  Serious: Yes (Hospitalization)
  Sender: FDA-Public Use
  Company Number: BR-ABBOTT-13P-020-1080306-00

PATIENT
  Age: 23 Year
  Sex: Female
  Weight: 50 kg

DRUGS (5)
  1. HUMIRA [Suspect]
     Indication: ANKYLOSING SPONDYLITIS
     Route: 058
     Dates: start: 20130308
  2. HUMIRA [Suspect]
     Indication: SPONDYLITIS
  3. AZULFIN [Concomitant]
     Indication: ANKYLOSING SPONDYLITIS
     Dosage: 1500 MG DAILY
     Route: 048
     Dates: start: 20130204
  4. LYRICA [Concomitant]
     Indication: ANKYLOSING SPONDYLITIS
     Route: 048
     Dates: start: 20130204
  5. CELEBRA [Concomitant]
     Indication: PRODUCT USED FOR UNKNOWN INDICATION

REACTIONS (8)
  - Anxiety [Unknown]
  - Tachycardia [Recovered/Resolved]
  - Chest pain [Recovering/Resolving]
  - Asthenia [Unknown]
  - Dyspnoea [Unknown]
  - Palpitations [Unknown]
  - Pallor [Unknown]
  - Lymphocyte count abnormal [Unknown]
